FAERS Safety Report 7466246-3 (Version None)
Quarter: 2011Q2

REPORT INFORMATION
  Report Type: 
  Country: None (occurrence: None)
  Receive Date: 20110428
  Receipt Date: 20110413
  Transmission Date: 20111010
  Serious: Yes (Death)
  Sender: FDA-Public Use
  Company Number: AUR-APL-2011-01311

PATIENT
  Age: 31 Year
  Sex: Male
  Weight: 101.6 kg

DRUGS (4)
  1. LAMOTRIGINE [Suspect]
     Indication: EPILEPSY
     Dosage: 100MG, BID, ORAL
     Route: 048
     Dates: start: 20090101, end: 20100426
  2. RISPERIDONE [Concomitant]
  3. VALPROATE SODIUM [Suspect]
     Indication: EPILEPSY
     Dosage: 100MG, BID, ORAL
     Route: 048
     Dates: start: 20090101, end: 20100426
  4. LACOSAMIDE [Suspect]
     Indication: EPILEPSY
     Dosage: 50MG, DAILY, ORAL
     Route: 048
     Dates: start: 20100320, end: 20100426

REACTIONS (2)
  - CONVULSION [None]
  - ASPHYXIA [None]
